FAERS Safety Report 8564950-7 (Version None)
Quarter: 2012Q3

REPORT INFORMATION
  Report Type: 
  Country: None (occurrence: None)
  Receive Date: 20120803
  Receipt Date: 20120802
  Transmission Date: 20120928
  Serious: No
  Sender: FDA-Public Use
  Company Number: US-PFIZER INC-2012188304

PATIENT
  Sex: Female

DRUGS (3)
  1. CHANTIX [Suspect]
     Dosage: 1 MG, UNK
  2. CHANTIX [Suspect]
     Dosage: 1 MG, 2X/DAY
  3. CHANTIX [Suspect]
     Dosage: UNK

REACTIONS (4)
  - NAUSEA [None]
  - DRUG INEFFECTIVE [None]
  - DIARRHOEA [None]
  - VOMITING [None]
